FAERS Safety Report 5680344-6 (Version None)
Quarter: 2008Q1

REPORT INFORMATION
  Report Type: 
  Country: None (occurrence: None)
  Receive Date: 20080326
  Receipt Date: 20080313
  Transmission Date: 20080703
  Serious: Yes (Other)
  Sender: FDA-Public Use
  Company Number: US-AMGEN-QUU269671

PATIENT
  Sex: Female

DRUGS (1)
  1. ENBREL [Suspect]
     Indication: PSORIASIS
     Route: 058
     Dates: start: 20040101, end: 20040101

REACTIONS (7)
  - ANXIETY [None]
  - PAIN [None]
  - POSTMENOPAUSAL HAEMORRHAGE [None]
  - PRURITUS [None]
  - PSORIASIS [None]
  - SKIN HAEMORRHAGE [None]
  - STRESS [None]
